FAERS Safety Report 4310954-X (Version None)
Quarter: 2004Q1

REPORT INFORMATION
  Report Type: 
  Country: None (occurrence: None)
  Receive Date: 20040302
  Receipt Date: 20030223
  Transmission Date: 20041129
  Serious: Yes (Death, Life-Threatening, Hospitalization, Other)
  Sender: FDA-Public Use
  Company Number: KII-2003-0007294

PATIENT
  Age: 36 Year
  Sex: Male

DRUGS (4)
  1. MS CONTIN [Suspect]
     Dosage: 30 MG, ORAL
     Route: 048
  2. COCAINE (COCAINE) [Suspect]
  3. ETHANOL (ETHANOL) [Suspect]
  4. HEROIN (DIAMORPHINE) [Suspect]

REACTIONS (17)
  - ACIDOSIS [None]
  - ALCOHOL USE [None]
  - APNOEA [None]
  - AREFLEXIA [None]
  - BLOOD CREATININE INCREASED [None]
  - BODY TEMPERATURE DECREASED [None]
  - BODY TEMPERATURE INCREASED [None]
  - BRAIN OEDEMA [None]
  - CARDIAC ARREST [None]
  - COMA [None]
  - CONVULSION [None]
  - HYPERTENSION [None]
  - LUNG INFILTRATION [None]
  - MULTIPLE DRUG OVERDOSE [None]
  - PNEUMONIA ASPIRATION [None]
  - PUPILLARY REFLEX IMPAIRED [None]
  - SINUS TACHYCARDIA [None]
